FAERS Safety Report 12305928 (Version 2)
Quarter: 2016Q2

REPORT INFORMATION
  Report Type: Spontaneous
  Country: US (occurrence: US)
  Receive Date: 20160426
  Receipt Date: 20160519
  Transmission Date: 20160815
  Serious: No
  Sender: FDA-Public Use
  Company Number: US-009507513-1604USA009327

PATIENT
  Sex: Female
  Weight: 71.2 kg

DRUGS (1)
  1. IMPLANON [Suspect]
     Active Substance: ETONOGESTREL
     Indication: CONTRACEPTIVE IMPLANT
     Dosage: UNK
     Route: 059
     Dates: start: 201602, end: 20160413

REACTIONS (4)
  - Urticaria [Unknown]
  - Adverse reaction [Unknown]
  - Rash [Unknown]
  - Gynaecological examination abnormal [Unknown]

NARRATIVE: CASE EVENT DATE: 2016
